FAERS Safety Report 14342786 (Version 1)
Quarter: 2017Q4

REPORT INFORMATION
  Report Type: Spontaneous
  Country: US (occurrence: US)
  Receive Date: 20171229
  Receipt Date: 20171229
  Transmission Date: 20180321
  Serious: Yes (Hospitalization)
  Sender: FDA-Public Use
  Company Number: None

PATIENT
  Sex: Female

DRUGS (1)
  1. LOREZAOAM [Suspect]
     Active Substance: LORAZEPAM

REACTIONS (2)
  - Seizure [None]
  - Mental disorder [None]

NARRATIVE: CASE EVENT DATE: 20170712
